FAERS Safety Report 14777942 (Version 1)
Quarter: 2018Q2

REPORT INFORMATION
  Report Type: Spontaneous
  Country: FR (occurrence: FR)
  Receive Date: 20180419
  Receipt Date: 20180419
  Transmission Date: 20180711
  Serious: Yes (Other)
  Sender: FDA-Public Use
  Company Number: FR-MERCK KGAA-2046045

PATIENT

DRUGS (1)
  1. NOVOTHYROX [Suspect]
     Active Substance: LEVOTHYROXINE SODIUM
     Indication: PRODUCT USED FOR UNKNOWN INDICATION

REACTIONS (17)
  - Aphonia [None]
  - Crying [None]
  - Fatigue [None]
  - Loss of personal independence in daily activities [None]
  - Headache [None]
  - Social avoidant behaviour [None]
  - Pain in extremity [None]
  - Mental fatigue [None]
  - Decreased activity [None]
  - Suicidal ideation [None]
  - Blood thyroid stimulating hormone abnormal [None]
  - Choking [None]
  - Muscle spasms [None]
  - Apathy [None]
  - Cough [None]
  - Alopecia [None]
  - Vomiting [None]
